FAERS Safety Report 8135134-1 (Version None)
Quarter: 2012Q1

REPORT INFORMATION
  Report Type: 
  Country: None (occurrence: None)
  Receive Date: 20120214
  Receipt Date: 20120201
  Transmission Date: 20120608
  Serious: Yes (Hospitalization)
  Sender: FDA-Public Use
  Company Number: SE-AMGEN-SWESP2011045421

PATIENT
  Age: 56 Year
  Sex: Female

DRUGS (2)
  1. ENBREL [Suspect]
     Indication: ANKYLOSING SPONDYLITIS
     Dosage: 25 MG, FREQUENCY UNKNOWN
     Route: 058
     Dates: start: 20071205, end: 20071215
  2. CELEBREX [Concomitant]
     Dosage: UNK

REACTIONS (1)
  - SUBARACHNOID HAEMORRHAGE [None]
